FAERS Safety Report 7725458-1 (Version None)
Quarter: 2011Q3

REPORT INFORMATION
  Report Type: 
  Country: None (occurrence: None)
  Receive Date: 20110902
  Receipt Date: 20110826
  Transmission Date: 20111222
  Serious: Yes (Hospitalization, Disabling, Other)
  Sender: FDA-Public Use
  Company Number: US-JNJFOC-20100806817

PATIENT
  Sex: Female

DRUGS (3)
  1. LEVAQUIN [Suspect]
     Indication: SINUS CONGESTION
     Route: 048
  2. CIPROFLOXACIN [Suspect]
     Indication: PYELONEPHRITIS
     Route: 065
  3. PREDNISONE [Suspect]
     Indication: PRODUCT USED FOR UNKNOWN INDICATION
     Route: 065

REACTIONS (13)
  - CHEST PAIN [None]
  - PAIN [None]
  - PHOTOPHOBIA [None]
  - TINNITUS [None]
  - DEPRESSION [None]
  - FACIAL PAIN [None]
  - ANXIETY [None]
  - MIGRAINE [None]
  - EYE PAIN [None]
  - HYPOTENSION [None]
  - VASOSPASM [None]
  - TENDON PAIN [None]
  - HYPERACUSIS [None]
